FAERS Safety Report 4918123-7 (Version None)
Quarter: 2006Q1

REPORT INFORMATION
  Report Type: 
  Country: None (occurrence: None)
  Receive Date: 20060221
  Receipt Date: 20050930
  Transmission Date: 20060701
  Serious: Yes (Hospitalization, Other)
  Sender: FDA-Public Use
  Company Number: US-MERCK-0510USA01946

PATIENT
  Age: 75 Year
  Sex: Male
  Weight: 75 kg

DRUGS (21)
  1. VIOXX [Suspect]
     Indication: ARTHRITIS
     Route: 048
     Dates: start: 19991209, end: 20040824
  2. CAPOTEN [Concomitant]
     Route: 065
  3. CAPTOPRIL [Concomitant]
     Route: 065
  4. CARDURA [Concomitant]
     Route: 065
  5. COREG [Concomitant]
     Route: 065
  6. EFFEXOR XR [Concomitant]
     Route: 065
  7. FOLIC ACID [Concomitant]
     Route: 065
  8. GLUCOTROL [Concomitant]
     Route: 065
  9. LASIX [Concomitant]
     Route: 065
  10. MAXZIDE [Concomitant]
     Route: 065
  11. NEXIUM [Concomitant]
     Route: 065
  12. NITROSTAT [Concomitant]
     Route: 065
  13. POTASSIUM CHLORIDE [Concomitant]
     Route: 065
  14. PRILOSEC [Concomitant]
     Route: 065
  15. PROVENTIL [Concomitant]
     Route: 065
  16. SLOW-K [Concomitant]
     Route: 065
  17. SOMA [Concomitant]
     Route: 065
  18. TYLENOL W/ CODEINE NO. 3 [Concomitant]
     Route: 065
  19. VALIUM [Concomitant]
     Route: 065
  20. VICODIN [Concomitant]
     Route: 065
  21. ZAROXOLYN [Concomitant]
     Route: 065

REACTIONS (18)
  - ANGINA PECTORIS [None]
  - ARTERIOSCLEROSIS CORONARY ARTERY [None]
  - BUNDLE BRANCH BLOCK LEFT [None]
  - CARDIAC FAILURE CONGESTIVE [None]
  - CEREBROVASCULAR ACCIDENT [None]
  - CHEST PAIN [None]
  - CHRONIC OBSTRUCTIVE PULMONARY DISEASE [None]
  - DEPRESSED LEVEL OF CONSCIOUSNESS [None]
  - FALL [None]
  - FOOT FRACTURE [None]
  - GENERAL SYMPTOM [None]
  - HEART RATE IRREGULAR [None]
  - MYOCARDIAL INFARCTION [None]
  - RASH [None]
  - SICK SINUS SYNDROME [None]
  - SKIN LACERATION [None]
  - SUBDURAL HAEMATOMA [None]
  - VENTRICULAR HYPERTROPHY [None]
